FAERS Safety Report 25274573 (Version 2)
Quarter: 2025Q4

REPORT INFORMATION
  Report Type: Spontaneous
  Country: CA (occurrence: CA)
  Receive Date: 20250506
  Receipt Date: 20251023
  Transmission Date: 20260118
  Serious: Yes (Other)
  Sender: PFIZER
  Company Number: CA-PFIZER INC-202300251454

PATIENT
  Age: 71 Year
  Sex: Female

DRUGS (16)
  1. RUXIENCE [Suspect]
     Active Substance: RITUXIMAB-PVVR
     Indication: Rheumatoid arthritis
     Dosage: 750 MG, (DAY 1 AND DAY 15)
     Route: 042
     Dates: start: 20230828, end: 20230912
  2. RUXIENCE [Suspect]
     Active Substance: RITUXIMAB-PVVR
     Dosage: 750 MG, (DAY 1 AND DAY 15)
     Route: 042
     Dates: start: 20230828, end: 20230912
  3. RUXIENCE [Suspect]
     Active Substance: RITUXIMAB-PVVR
     Dosage: 750 MG, (DAY 1 AND DAY 15)
     Route: 042
     Dates: start: 20230912, end: 20230912
  4. RUXIENCE [Suspect]
     Active Substance: RITUXIMAB-PVVR
     Dosage: 750 MG, (DAY 1 AND DAY 15)
     Route: 042
     Dates: start: 20230912, end: 20230912
  5. RUXIENCE [Suspect]
     Active Substance: RITUXIMAB-PVVR
     Dosage: 750 MG, SINGLE (SINGLE DOSE)
     Route: 042
     Dates: start: 20240426, end: 20240426
  6. RUXIENCE [Suspect]
     Active Substance: RITUXIMAB-PVVR
     Dosage: 750 MG, SINGLE (SINGLE DOSE)
     Route: 042
     Dates: start: 20240426, end: 20240426
  7. RUXIENCE [Suspect]
     Active Substance: RITUXIMAB-PVVR
     Dosage: 750 MG, SINGLE (AFTER 30 WEEKS 5 DAYS/SINGLE DOSE)
     Route: 042
     Dates: start: 20241127, end: 20241127
  8. RUXIENCE [Suspect]
     Active Substance: RITUXIMAB-PVVR
     Dosage: 750 MG, SINGLE (AFTER 30 WEEKS 5 DAYS/SINGLE DOSE)
     Route: 042
     Dates: start: 20241127, end: 20241127
  9. RUXIENCE [Suspect]
     Active Substance: RITUXIMAB-PVVR
     Dosage: 750 MG, X1 DOSE
     Route: 042
     Dates: start: 20250605
  10. RUXIENCE [Suspect]
     Active Substance: RITUXIMAB-PVVR
     Dosage: 750 MG, X1 DOSE,
     Route: 042
     Dates: start: 20250605
  11. ACETAMINOPHEN [Concomitant]
     Active Substance: ACETAMINOPHEN
     Indication: Premedication
     Dosage: UNK
  12. ACETAMINOPHEN [Concomitant]
     Active Substance: ACETAMINOPHEN
     Dosage: UNK
     Dates: start: 20241127, end: 20241127
  13. DIPHENHYDRAMINE [Concomitant]
     Active Substance: DIPHENHYDRAMINE
     Indication: Premedication
     Dosage: UNK
  14. DIPHENHYDRAMINE [Concomitant]
     Active Substance: DIPHENHYDRAMINE
     Dosage: UNK
     Dates: start: 20241127, end: 20241127
  15. METHYLPREDNISOLONE [Concomitant]
     Active Substance: METHYLPREDNISOLONE
     Indication: Premedication
     Dosage: UNK
  16. METHYLPREDNISOLONE [Concomitant]
     Active Substance: METHYLPREDNISOLONE
     Dosage: UNK
     Dates: start: 20241127, end: 20241127

REACTIONS (6)
  - Cataract [Unknown]
  - Therapeutic response shortened [Unknown]
  - Blood pressure increased [Unknown]
  - Blood pressure systolic increased [Recovered/Resolved]
  - Off label use [Unknown]
  - Off label use [Unknown]

NARRATIVE: CASE EVENT DATE: 20230828
